FAERS Safety Report 7114445-2 (Version None)
Quarter: 2010Q4

REPORT INFORMATION
  Report Type: 
  Country: None (occurrence: None)
  Receive Date: 20101119
  Receipt Date: 20101105
  Transmission Date: 20110411
  Serious: Yes (Death)
  Sender: FDA-Public Use
  Company Number: GB-ELI_LILLY_AND_COMPANY-GB201011001384

PATIENT
  Age: 63 Year
  Sex: Female
  Weight: 65 kg

DRUGS (4)
  1. PROZAC [Suspect]
     Indication: DEPRESSION
     Dosage: 60 MG, DAILY (1/D)
     Route: 048
     Dates: start: 20090114
  2. TRYPTOPHAN, L- [Concomitant]
     Indication: DEPRESSION
     Dosage: 500 MG, 3/D
     Dates: start: 20090114
  3. SINEMET [Concomitant]
     Indication: PARKINSONISM
     Dosage: 0.5 D/F, 2/D
     Route: 048
     Dates: start: 20100115
  4. WARFARIN SODIUM [Concomitant]

REACTIONS (8)
  - AGITATION [None]
  - BALANCE DISORDER [None]
  - DECREASED APPETITE [None]
  - DIZZINESS [None]
  - DRUG INTERACTION [None]
  - DRUG TOXICITY [None]
  - FEELING ABNORMAL [None]
  - WEIGHT DECREASED [None]
